FAERS Safety Report 10942017 (Version 2)
Quarter: 2015Q2

REPORT INFORMATION
  Report Type: Spontaneous
  Country: US (occurrence: US)
  Receive Date: 20150322
  Receipt Date: 20150524
  Transmission Date: 20150821
  Serious: No
  Sender: FDA-Public Use
  Company Number: US-JNJFOC-20140118886

PATIENT
  Age: 6 Decade
  Sex: Female

DRUGS (2)
  1. BYDUREON [Concomitant]
     Active Substance: EXENATIDE
  2. INVOKANA [Suspect]
     Active Substance: CANAGLIFLOZIN
     Indication: PRODUCT USED FOR UNKNOWN INDICATION
     Route: 048

REACTIONS (1)
  - Headache [Recovered/Resolved]
